FAERS Safety Report 8584617-9 (Version None)
Quarter: 2012Q3

REPORT INFORMATION
  Report Type: 
  Country: None (occurrence: None)
  Receive Date: 20120810
  Receipt Date: 20120731
  Transmission Date: 20120928
  Serious: Yes (Hospitalization)
  Sender: FDA-Public Use
  Company Number: US-BAYER-2012-029768

PATIENT
  Age: 22 Year
  Sex: Female
  Weight: 62.585 kg

DRUGS (4)
  1. DROSPIRENONE AND ETHINYL ESTRADIOL [Suspect]
     Dosage: UNK
     Route: 048
     Dates: start: 20100201, end: 20100301
  2. ANTIBIOTICS [Concomitant]
     Indication: ACNE
     Dosage: UNK
     Dates: start: 20050101, end: 20100101
  3. YASMIN [Suspect]
     Dosage: UNK
     Dates: start: 20100301, end: 20100501
  4. CEFADROXIL [Concomitant]
     Dosage: 500 MG, UNK
     Dates: start: 20100202

REACTIONS (6)
  - PULMONARY EMBOLISM [None]
  - INJURY [None]
  - ANXIETY [None]
  - GENERAL PHYSICAL HEALTH DETERIORATION [None]
  - PAIN [None]
  - EMOTIONAL DISTRESS [None]
